FAERS Safety Report 23662207 (Version 1)
Quarter: 2024Q1

REPORT INFORMATION
  Report Type: Report from Study
  Country: US (occurrence: US)
  Receive Date: 20240322
  Receipt Date: 20240322
  Transmission Date: 20240409
  Serious: Yes (Hospitalization)
  Sender: FDA-Public Use
  Company Number: US-002147023-NVSC2023US272860

PATIENT
  Age: 81 Year
  Sex: Female

DRUGS (2)
  1. TAFINLAR [Suspect]
     Active Substance: DABRAFENIB MESYLATE
     Indication: Non-small cell lung cancer metastatic
     Dosage: UNK, QD
     Route: 048
  2. MEKINIST [Suspect]
     Active Substance: TRAMETINIB DIMETHYL SULFOXIDE
     Indication: Non-small cell lung cancer metastatic
     Dosage: UNK, BID
     Route: 048
     Dates: start: 2023

REACTIONS (2)
  - Thrombosis [Unknown]
  - Adverse event [Unknown]

NARRATIVE: CASE EVENT DATE: 20231208
